FAERS Safety Report 5232426-0 (Version None)
Quarter: 2007Q1

REPORT INFORMATION
  Report Type: 
  Country: None (occurrence: None)
  Receive Date: 20070205
  Receipt Date: 20070121
  Transmission Date: 20070707
  Serious: Yes (Hospitalization)
  Sender: FDA-Public Use
  Company Number: 230944

PATIENT
  Age: 69 Year
  Sex: Male
  Weight: 77.9 kg

DRUGS (19)
  1. AVASTIN [Suspect]
     Indication: COLORECTAL CANCER
     Dosage: 390 MG, Q2W, INTRAVENOUS
     Route: 042
     Dates: start: 20060922, end: 20060922
  2. CAPECITABINE(CAPECITABINE) [Suspect]
     Indication: COLORECTAL CANCER
     Dosage: 3300 MG, ORAL; 2800 MG
     Route: 048
     Dates: start: 20060922
  3. OXALIPLATIN [Suspect]
     Indication: COLORECTAL CANCER
     Dosage: 160 MG, Q2W, INTRAVENOUS
     Route: 042
     Dates: start: 20060922
  4. ACETAMINOPHEN [Concomitant]
  5. MORPHINE SULFATE [Concomitant]
  6. SENNA/DOCUSATE SODIUM (DOCUSATE SODIUM, SENNA) [Concomitant]
  7. MAXOLON [Concomitant]
  8. LACTULOSE [Concomitant]
  9. CYCLIZINE (CYCLIZINE) [Concomitant]
  10. NOZINAN (METHOTRIMEPRAZINE) [Concomitant]
  11. LORAZEPAM [Concomitant]
  12. MICROLAX (DODECYL SULFOACETIC ACID, GLYCERIN, LAURETH 9, SODIUM CITRAT [Concomitant]
  13. ENOXAPARIN SODIUM [Concomitant]
  14. HEPARIN [Concomitant]
  15. LOPERAMIDE [Concomitant]
  16. SUPPLEMENT NOS (SUPPLEMENTS) [Concomitant]
  17. SLOW-K [Concomitant]
  18. CHLORVESCENT (POTASSIUM BICARBONATE, POTASSIUM CHLORIDE) [Concomitant]
  19. AUGMENTIN '250' [Concomitant]

REACTIONS (8)
  - CONFUSIONAL STATE [None]
  - DELIRIUM [None]
  - DYSPHAGIA [None]
  - EXTRADURAL HAEMATOMA [None]
  - FACIAL PALSY [None]
  - FALL [None]
  - MUSCLE TWITCHING [None]
  - PULMONARY EMBOLISM [None]
